FAERS Safety Report 17793633 (Version 1)
Quarter: 2020Q2

REPORT INFORMATION
  Report Type: Spontaneous
  Country: BR (occurrence: BR)
  Receive Date: 20200515
  Receipt Date: 20200515
  Transmission Date: 20200714
  Serious: Yes (Other)
  Sender: FDA-Public Use
  Company Number: BR-BAYER-2020-048603

PATIENT
  Age: 34 Year
  Sex: Female

DRUGS (1)
  1. QLAIRA [Suspect]
     Active Substance: DIENOGEST\ESTRADIOL VALERATE
     Indication: CONTRACEPTION
     Dosage: UNK UNK, QD
     Route: 048
     Dates: start: 20191108, end: 20200311

REACTIONS (9)
  - Headache [Not Recovered/Not Resolved]
  - Product prescribing issue [None]
  - Malaise [Not Recovered/Not Resolved]
  - Incorrect product administration duration [None]
  - Nausea [Not Recovered/Not Resolved]
  - Gestational diabetes [None]
  - Pregnancy on oral contraceptive [Not Recovered/Not Resolved]
  - Drug ineffective [None]
  - Diarrhoea [Not Recovered/Not Resolved]

NARRATIVE: CASE EVENT DATE: 20191108
